FAERS Safety Report 6457005-9 (Version None)
Quarter: 2009Q4

REPORT INFORMATION
  Report Type: 
  Country: None (occurrence: None)
  Receive Date: 20091125
  Receipt Date: 20091118
  Transmission Date: 20100525
  Serious: Yes (Disabling, Other)
  Sender: FDA-Public Use
  Company Number: US-PFIZER INC-2005127456

PATIENT
  Sex: Female

DRUGS (2)
  1. NORVASC [Suspect]
     Route: 065
  2. VALSARTAN [Concomitant]
     Route: 048

REACTIONS (3)
  - BLINDNESS [None]
  - BLOOD PRESSURE INADEQUATELY CONTROLLED [None]
  - MACULAR DEGENERATION [None]
